FAERS Safety Report 8493064-X (Version None)
Quarter: 2012Q3

REPORT INFORMATION
  Report Type: 
  Country: None (occurrence: None)
  Receive Date: 20120706
  Receipt Date: 20120621
  Transmission Date: 20120928
  Serious: Yes (Other)
  Sender: FDA-Public Use
  Company Number: US-WATSON-2012-10209

PATIENT
  Sex: Female
  Weight: 60.8 kg

DRUGS (4)
  1. NORCO [Suspect]
     Indication: PAIN
     Dosage: 1 TAB, X 1 DOSE ONLY
     Route: 048
     Dates: start: 20120519, end: 20120519
  2. IMODIUM [Concomitant]
     Indication: DIARRHOEA
     Dosage: 1 TAB, PRN
     Route: 048
  3. DIAZEPAM [Suspect]
     Indication: EXTRAPYRAMIDAL DISORDER
     Dosage: 1 TAB X 1 DOSE ONLY
     Route: 048
     Dates: start: 20120519, end: 20120519
  4. CYMBALTA [Concomitant]
     Indication: DEPRESSION
     Dosage: 1 TAB TID
     Route: 048

REACTIONS (1)
  - PETIT MAL EPILEPSY [None]
